APPROVED DRUG PRODUCT: ETHYNODIOL DIACETATE AND ETHINYL ESTRADIOL
Active Ingredient: ETHINYL ESTRADIOL; ETHYNODIOL DIACETATE
Strength: 0.05MG;1MG
Dosage Form/Route: TABLET;ORAL-28
Application: A204704 | Product #001 | TE Code: AB
Applicant: XIROMED LLC
Approved: Feb 9, 2016 | RLD: No | RS: No | Type: RX